FAERS Safety Report 9901543 (Version 1)
Quarter: 2014Q1

REPORT INFORMATION
  Report Type: Spontaneous
  Country: US (occurrence: US)
  Receive Date: 20140217
  Receipt Date: 20140217
  Transmission Date: 20141002
  Serious: No
  Sender: FDA-Public Use
  Company Number: US-GILEAD-2011-0042784

PATIENT
  Age: 70 Year
  Sex: Female

DRUGS (15)
  1. LETAIRIS [Suspect]
     Indication: PULMONARY HYPERTENSION
     Route: 048
     Dates: start: 20110607
  2. LETAIRIS [Suspect]
     Route: 048
     Dates: start: 20110428, end: 20110607
  3. WARFARIN [Concomitant]
  4. IPRATROPIUM [Concomitant]
  5. ATENOLOL [Concomitant]
  6. ASMANEX [Concomitant]
  7. VYTORIN [Concomitant]
  8. HYDROCODONE/APAP [Concomitant]
  9. CARISOPRODOL [Concomitant]
  10. SUCRALFATE [Concomitant]
  11. SPIRONOLACTONE [Concomitant]
  12. ASA [Concomitant]
  13. OMEPRAZOLE [Concomitant]
  14. FUROSEMIDE [Concomitant]
  15. MVI [Concomitant]

REACTIONS (4)
  - Urinary retention [Recovered/Resolved]
  - Insomnia [Recovered/Resolved]
  - Headache [Recovered/Resolved]
  - Constipation [Recovered/Resolved]
